FAERS Safety Report 8588920-8 (Version None)
Quarter: 2012Q3

REPORT INFORMATION
  Report Type: 
  Country: None (occurrence: None)
  Receive Date: 20120731
  Receipt Date: 20120720
  Transmission Date: 20120928
  Serious: Yes (Life-Threatening, Hospitalization)
  Sender: FDA-Public Use
  Company Number: DSA_58278_2012

PATIENT
  Age: 57 Year
  Sex: Male

DRUGS (9)
  1. CLARITIN [Suspect]
     Indication: SEASONAL ALLERGY
     Dosage: (10 MG, ORAL)
     Route: 048
     Dates: start: 20110101
  2. DOBUTREX [Concomitant]
  3. CARPERITIDE [Concomitant]
  4. FUROSEMIDE [Suspect]
     Indication: PRODUCT USED FOR UNKNOWN INDICATION
     Dosage: (DF)
     Dates: start: 20110501
  5. AMIODARONE HYDROCHLORIDE [Suspect]
     Indication: ATRIAL FIBRILLATION
     Dosage: (DF INTRAVENOUS (NOT OTHERWISE SPECIFIED))
     Route: 042
     Dates: start: 20110101
  6. AMIODARONE HYDROCHLORIDE [Suspect]
     Indication: VENTRICULAR FIBRILLATION
     Dosage: (DF INTRAVENOUS (NOT OTHERWISE SPECIFIED))
     Route: 042
     Dates: start: 20110101
  7. AMIODARONE HYDROCHLORIDE [Suspect]
     Indication: TORSADE DE POINTES
     Dosage: (DF INTRAVENOUS (NOT OTHERWISE SPECIFIED))
     Route: 042
     Dates: start: 20110101
  8. AMIODARONE HYDROCHLORIDE [Suspect]
     Indication: CARDIAC FAILURE
     Dosage: (DF INTRAVENOUS (NOT OTHERWISE SPECIFIED))
     Route: 042
     Dates: start: 20110101
  9. DILTIAZEM HYDROCHLORIDE [Suspect]
     Indication: PRODUCT USED FOR UNKNOWN INDICATION
     Dosage: (DF ORAL)
     Route: 048
     Dates: start: 20110501

REACTIONS (7)
  - VENTRICULAR FIBRILLATION [None]
  - VENTRICULAR EXTRASYSTOLES [None]
  - ATRIAL FIBRILLATION [None]
  - SYNCOPE [None]
  - TORSADE DE POINTES [None]
  - TACHYCARDIA [None]
  - CARDIAC FAILURE [None]
